FAERS Safety Report 17077422 (Version 1)
Quarter: 2019Q4

REPORT INFORMATION
  Report Type: Spontaneous
  Country: SE (occurrence: SE)
  Receive Date: 20191126
  Receipt Date: 20191126
  Transmission Date: 20200122
  Serious: Yes (Hospitalization)
  Sender: FDA-Public Use
  Company Number: SE-009507513-1911SWE009654

PATIENT
  Age: 18 Year
  Sex: Male

DRUGS (2)
  1. LERGIGAN (PROMETHAZINE HYDROCHLORIDE) [Suspect]
     Active Substance: PROMETHAZINE HYDROCHLORIDE
     Dosage: ^20 TO 30 PIECES AT 25 MG EACH^
     Route: 048
     Dates: start: 20180301, end: 20180301
  2. MIRTAZAPINE. [Suspect]
     Active Substance: MIRTAZAPINE
     Dosage: ^45 MG, MAXIMUM OF 20 PIECES^
     Route: 048
     Dates: start: 20180301, end: 20180301

REACTIONS (5)
  - Fatigue [Unknown]
  - Depressed level of consciousness [Unknown]
  - Vomiting [Unknown]
  - Intentional overdose [Unknown]
  - Intentional self-injury [Unknown]

NARRATIVE: CASE EVENT DATE: 20180301
